FAERS Safety Report 15566874 (Version 8)
Quarter: 2019Q2

REPORT INFORMATION
  Report Type: Report from Study
  Country: CA (occurrence: CA)
  Receive Date: 20181030
  Receipt Date: 20190411
  Transmission Date: 20190711
  Serious: Yes (Hospitalization, Other)
  Sender: FDA-Public Use
  Company Number: PHHY2017CA010175

PATIENT
  Age: 56 Year
  Sex: Female

DRUGS (24)
  1. XOLAIR [Suspect]
     Active Substance: OMALIZUMAB
     Dosage: UNK
     Route: 058
     Dates: start: 20170119
  2. XOLAIR [Suspect]
     Active Substance: OMALIZUMAB
     Dosage: UNK
     Route: 058
     Dates: start: 20170221
  3. XOLAIR [Suspect]
     Active Substance: OMALIZUMAB
     Dosage: UNK
     Route: 058
     Dates: start: 20170711
  4. XOLAIR [Suspect]
     Active Substance: OMALIZUMAB
     Dosage: UNK
     Route: 058
     Dates: start: 20171017
  5. XOLAIR [Suspect]
     Active Substance: OMALIZUMAB
     Dosage: UNK
     Route: 058
     Dates: start: 20170502
  6. XOLAIR [Suspect]
     Active Substance: OMALIZUMAB
     Dosage: 375 MG, BIW
     Route: 058
     Dates: start: 20180816
  7. XOLAIR [Suspect]
     Active Substance: OMALIZUMAB
     Dosage: 375 MG, BIW
     Route: 058
     Dates: start: 20181023
  8. SPIRIVA [Concomitant]
     Active Substance: TIOTROPIUM BROMIDE MONOHYDRATE
     Indication: PRODUCT USED FOR UNKNOWN INDICATION
     Dosage: 2 DF, QD
     Route: 065
  9. XOLAIR [Suspect]
     Active Substance: OMALIZUMAB
     Dosage: UNK
     Route: 058
     Dates: start: 20170131
  10. XOLAIR [Suspect]
     Active Substance: OMALIZUMAB
     Dosage: UNK
     Route: 058
     Dates: start: 20170321
  11. XOLAIR [Suspect]
     Active Substance: OMALIZUMAB
     Dosage: UNK
     Route: 058
     Dates: start: 20170404
  12. XOLAIR [Suspect]
     Active Substance: OMALIZUMAB
     Dosage: UNK
     Route: 058
     Dates: start: 20170418
  13. PREDNISONE. [Concomitant]
     Active Substance: PREDNISONE
     Indication: PRODUCT USED FOR UNKNOWN INDICATION
     Dosage: UNK
     Route: 065
  14. XOLAIR [Suspect]
     Active Substance: OMALIZUMAB
     Dosage: UNK
     Route: 058
     Dates: start: 20170629
  15. MONTELUKAST [Concomitant]
     Active Substance: MONTELUKAST SODIUM
     Indication: PRODUCT USED FOR UNKNOWN INDICATION
     Dosage: 1 DF, QD
     Route: 065
  16. XOLAIR [Suspect]
     Active Substance: OMALIZUMAB
     Indication: ASTHMA
     Dosage: 375 MG, BIW
     Route: 058
     Dates: start: 20170105
  17. XOLAIR [Suspect]
     Active Substance: OMALIZUMAB
     Dosage: 375 MG, BIW
     Route: 058
     Dates: start: 20180717
  18. XOLAIR [Suspect]
     Active Substance: OMALIZUMAB
     Dosage: UNK
     Route: 058
     Dates: start: 20180828
  19. XOLAIR [Suspect]
     Active Substance: OMALIZUMAB
     Dosage: 375 MG, BIW
     Route: 058
     Dates: start: 20190105
  20. XOLAIR [Suspect]
     Active Substance: OMALIZUMAB
     Dosage: 375 MG, BIW
     Route: 058
     Dates: start: 20190322
  21. XOLAIR [Suspect]
     Active Substance: OMALIZUMAB
     Dosage: UNK
     Route: 058
     Dates: start: 20170919
  22. SYMBICORT [Concomitant]
     Active Substance: BUDESONIDE\FORMOTEROL FUMARATE DIHYDRATE
     Indication: PRODUCT USED FOR UNKNOWN INDICATION
     Dosage: 2 DF, BID
     Route: 065
  23. XOLAIR [Suspect]
     Active Substance: OMALIZUMAB
     Dosage: UNK
     Route: 058
     Dates: start: 20170307
  24. XOLAIR [Suspect]
     Active Substance: OMALIZUMAB
     Dosage: 375 MG, BIW
     Route: 058
     Dates: start: 20180208

REACTIONS (31)
  - Bronchitis [Recovering/Resolving]
  - Pain in extremity [Unknown]
  - Cough [Recovering/Resolving]
  - Productive cough [Unknown]
  - Ill-defined disorder [Recovering/Resolving]
  - Diarrhoea [Unknown]
  - Headache [Recovered/Resolved]
  - Headache [Recovering/Resolving]
  - Irritable bowel syndrome [Unknown]
  - Malaise [Unknown]
  - Hyperhidrosis [Recovered/Resolved]
  - Osteoporosis [Unknown]
  - Cerebrovascular accident [Unknown]
  - Heart rate increased [Unknown]
  - Peripheral swelling [Unknown]
  - Gait disturbance [Not Recovered/Not Resolved]
  - Crohn^s disease [Unknown]
  - Arterial stenosis [Unknown]
  - Wheezing [Not Recovered/Not Resolved]
  - Mobility decreased [Unknown]
  - Nasopharyngitis [Recovering/Resolving]
  - Chest pain [Recovered/Resolved]
  - Sputum discoloured [Unknown]
  - Arthralgia [Unknown]
  - Nasal congestion [Recovering/Resolving]
  - Injection site irritation [Unknown]
  - Lower respiratory tract infection [Recovering/Resolving]
  - Acetabulum fracture [Unknown]
  - Asthenia [Recovered/Resolved]
  - Hypoaesthesia [Recovered/Resolved]
  - Joint injury [Unknown]

NARRATIVE: CASE EVENT DATE: 2017
